FAERS Safety Report 6156974-4 (Version None)
Quarter: 2009Q2

REPORT INFORMATION
  Report Type: 
  Country: None (occurrence: None)
  Receive Date: 20090413
  Receipt Date: 20090413
  Transmission Date: 20091009
  Serious: Yes (Other)
  Sender: FDA-Public Use
  Company Number: None

PATIENT
  Age: 54 Year
  Sex: Female
  Weight: 69.8539 kg

DRUGS (2)
  1. NITROFURANTOIN MACROCRYSTALLINE [Suspect]
     Indication: URINARY TRACT INFECTION
     Dosage: 1 CAPSULE TWICE DAILY W/FOOD PO
     Route: 048
     Dates: start: 20090401, end: 20090403
  2. NITROFURANTOIN MACROCRYSTALLINE [Suspect]
     Indication: URINARY TRACT INFECTION
     Dosage: 1 CAPSULE TWICE DAILY W/FOOD PO
     Route: 048
     Dates: start: 20090405, end: 20090405

REACTIONS (11)
  - ALTERED STATE OF CONSCIOUSNESS [None]
  - ANOREXIA [None]
  - ASTHENIA [None]
  - DEHYDRATION [None]
  - DIARRHOEA [None]
  - FAECAL INCONTINENCE [None]
  - HYPOPHAGIA [None]
  - MALAISE [None]
  - PAIN IN EXTREMITY [None]
  - PERFORMANCE STATUS DECREASED [None]
  - VOMITING [None]
